FAERS Safety Report 18134140 (Version 1)
Quarter: 2020Q3

REPORT INFORMATION
  Report Type: Spontaneous
  Country: US (occurrence: US)
  Receive Date: 20200811
  Receipt Date: 20200811
  Transmission Date: 20201103
  Serious: No
  Sender: FDA-Public Use
  Company Number: US-TEVA-2020-US-1809548

PATIENT
  Age: 47 Year
  Sex: Female
  Weight: 124.4 kg

DRUGS (3)
  1. AUSTEDO [Suspect]
     Active Substance: DEUTETRABENAZINE
     Dosage: 12 MILLIGRAM DAILY;
     Route: 048
     Dates: start: 20200727
  2. AUSTEDO [Suspect]
     Active Substance: DEUTETRABENAZINE
     Indication: TARDIVE DYSKINESIA
     Route: 048
     Dates: start: 2019, end: 202005
  3. MELATONIN [Concomitant]
     Active Substance: MELATONIN

REACTIONS (5)
  - Abdominal pain upper [Unknown]
  - Constipation [Unknown]
  - Product dose omission issue [Unknown]
  - Malaise [Unknown]
  - Abdominal pain [Unknown]

NARRATIVE: CASE EVENT DATE: 202007
